FAERS Safety Report 12484312 (Version 1)
Quarter: 2016Q2

REPORT INFORMATION
  Report Type: Spontaneous
  Country: US (occurrence: None)
  Receive Date: 20160620
  Receipt Date: 20160620
  Transmission Date: 20160815
  Serious: Yes (Disabling)
  Sender: FDA-Public Use
  Company Number: None

PATIENT
  Age: 72 Year
  Sex: Female
  Weight: 74.84 kg

DRUGS (12)
  1. LISINOPRIL. [Concomitant]
     Active Substance: LISINOPRIL
  2. ESTRADIOL GENERIC FOR ESTRACE TABLETS 0.5MG [Suspect]
     Active Substance: ESTRADIOL
     Indication: MENOPAUSE
     Dosage: 1 PILL EVERY DAY ONCE DAILY IN P.M. BY MOUTH
     Route: 048
     Dates: start: 19860620, end: 20160210
  3. HYOSCYAMINE. [Concomitant]
     Active Substance: HYOSCYAMINE
  4. ESTRADIOL GENERIC FOR ESTRACE TABLETS 0.5MG [Suspect]
     Active Substance: ESTRADIOL
     Indication: OVARIAN CYST
     Dosage: 1 PILL EVERY DAY ONCE DAILY IN P.M. BY MOUTH
     Route: 048
     Dates: start: 19860620, end: 20160210
  5. TYLENOL (EXTRA STRENGTH) [Concomitant]
  6. VITAMIN D3 [Concomitant]
     Active Substance: CHOLECALCIFEROL
  7. FLAX SEED [Concomitant]
     Active Substance: FLAX SEED
  8. LEVOTHYROXINE. [Concomitant]
     Active Substance: LEVOTHYROXINE
  9. COROMEGA 3 [Concomitant]
  10. ACYCLOVIR. [Concomitant]
     Active Substance: ACYCLOVIR
  11. MULTI VITAMIN [Concomitant]
     Active Substance: VITAMINS
  12. ZEASORB [Concomitant]
     Active Substance: MICONAZOLE NITRATE

REACTIONS (1)
  - Gingival bleeding [None]

NARRATIVE: CASE EVENT DATE: 198606
